FAERS Safety Report 7711558 (Version 3)
Quarter: 2016Q4

REPORT INFORMATION
  Report Type: Spontaneous
  Country: US (occurrence: US)
  Receive Date: 20101215
  Receipt Date: 20161007
  Transmission Date: 20170207
  Serious: Yes (Other)
  Sender: FDA-Public Use
  Company Number: US-PFIZER INC-2010171051

PATIENT
  Age: 68 Year
  Sex: Female
  Weight: 113 kg

DRUGS (4)
  1. PREMPHASE [Suspect]
     Active Substance: ESTROGENS, CONJUGATED\MEDROXYPROGESTERONE ACETATE
     Indication: DEPRESSION
     Dosage: 0.625 MG, 1X/DAY
     Route: 048
     Dates: start: 1998
  2. QUINAPRIL. [Concomitant]
     Active Substance: QUINAPRIL
     Indication: CARDIAC DISORDER
     Dosage: 20 MG, 2X/DAY
  3. GLIPIZIDE. [Concomitant]
     Active Substance: GLIPIZIDE
     Dosage: 10 MG, 2X/DAY
  4. METFORMIN [Concomitant]
     Active Substance: METFORMIN HYDROCHLORIDE
     Indication: DIABETES MELLITUS
     Dosage: 500 MG, 3X/DAY

REACTIONS (6)
  - Weight decreased [Unknown]
  - Blood pressure increased [Unknown]
  - Drug ineffective [Unknown]
  - Product use issue [Unknown]
  - Diabetes mellitus [Unknown]
  - Condition aggravated [Unknown]
